FAERS Safety Report 13835679 (Version 2)
Quarter: 2017Q4

REPORT INFORMATION
  Report Type: Spontaneous
  Country: US (occurrence: US)
  Receive Date: 20170804
  Receipt Date: 20171020
  Transmission Date: 20180320
  Serious: Yes (Other)
  Sender: FDA-Public Use
  Company Number: US-PERRIGO-17US025461

PATIENT
  Age: 1 Year
  Sex: Female
  Weight: 11.34 kg

DRUGS (1)
  1. LORATADINE. [Suspect]
     Active Substance: LORATADINE
     Indication: ACCIDENTAL EXPOSURE TO PRODUCT
     Dosage: 40 TO 50 MG, SINGLE
     Route: 048
     Dates: start: 20170713, end: 20170713

REACTIONS (3)
  - Psychomotor hyperactivity [Recovered/Resolved]
  - Accidental exposure to product [Recovered/Resolved]
  - Dysuria [Recovered/Resolved]

NARRATIVE: CASE EVENT DATE: 20170713
